FAERS Safety Report 8247452-7 (Version None)
Quarter: 2012Q1

REPORT INFORMATION
  Report Type: 
  Country: None (occurrence: None)
  Receive Date: 20120330
  Receipt Date: 20120321
  Transmission Date: 20120608
  Serious: Yes (Other)
  Sender: FDA-Public Use
  Company Number: US-BAYER-2012-028175

PATIENT

DRUGS (1)
  1. LIDOCAINE HCL [Suspect]
     Route: 048

REACTIONS (2)
  - ANXIETY [None]
  - HYPOAESTHESIA [None]
